FAERS Safety Report 17594384 (Version 1)
Quarter: 2020Q1

REPORT INFORMATION
  Report Type: Spontaneous
  Country: IT (occurrence: IT)
  Receive Date: 20200327
  Receipt Date: 20200327
  Transmission Date: 20200409
  Serious: Yes (Hospitalization)
  Sender: FDA-Public Use
  Company Number: IT-BAUSCH-BL-2020-008733

PATIENT
  Age: 66 Year
  Sex: Female
  Weight: 103 kg

DRUGS (2)
  1. LEVOFLOXACIN. [Suspect]
     Active Substance: LEVOFLOXACIN
     Indication: INFECTION
     Route: 048
     Dates: start: 20200116, end: 20200121
  2. RIFAXIMIN. [Suspect]
     Active Substance: RIFAXIMIN
     Indication: INFECTION
     Route: 048
     Dates: start: 20200116, end: 20200128

REACTIONS (2)
  - Intentional product use issue [Unknown]
  - Granulocytopenia [Recovered/Resolved]

NARRATIVE: CASE EVENT DATE: 20200116
